FAERS Safety Report 5846711-2 (Version None)
Quarter: 2008Q3

REPORT INFORMATION
  Report Type: 
  Country: None (occurrence: None)
  Receive Date: 20080815
  Receipt Date: 20080808
  Transmission Date: 20090109
  Serious: Yes (Hospitalization)
  Sender: FDA-Public Use
  Company Number: FR-ABBOTT-08P-056-0469840-00

PATIENT
  Sex: Female

DRUGS (2)
  1. DEPAKENE [Suspect]
     Indication: DRUG USE FOR UNKNOWN INDICATION
     Route: 048
     Dates: start: 20080401, end: 20080619
  2. DEPAKENE [Suspect]
     Route: 048
     Dates: start: 20080619, end: 20080629

REACTIONS (3)
  - CONDITION AGGRAVATED [None]
  - ENCEPHALOPATHY [None]
  - PSYCHOMOTOR RETARDATION [None]
